FAERS Safety Report 8801535 (Version 2)
Quarter: 2012Q4

REPORT INFORMATION
  Report Type: 
  Country: FI (occurrence: FI)
  Receive Date: 20120921
  Receipt Date: 20121129
  Transmission Date: 20130627
  Serious: Yes (Other)
  Sender: FDA-Public Use
  Company Number: FI-JNJFOC-20120905246

PATIENT
  Age: 17 Year
  Sex: Male
  Weight: 40 kg

DRUGS (6)
  1. RISPERDAL [Suspect]
     Indication: ATTENTION DEFICIT/HYPERACTIVITY DISORDER
     Route: 065
  2. RISPERDAL [Suspect]
     Indication: ATTENTION DEFICIT/HYPERACTIVITY DISORDER
     Route: 065
     Dates: start: 20111231
  3. RISPERDAL [Suspect]
     Indication: ATTENTION DEFICIT/HYPERACTIVITY DISORDER
     Route: 065
  4. RISPERDAL [Suspect]
     Indication: ATTENTION DEFICIT/HYPERACTIVITY DISORDER
     Route: 065
     Dates: start: 201101
  5. RISPERDAL [Suspect]
     Indication: ATTENTION DEFICIT/HYPERACTIVITY DISORDER
     Route: 065
     Dates: start: 2011
  6. LEVOCETIRIZINE [Concomitant]
     Route: 065

REACTIONS (7)
  - Epilepsy [Unknown]
  - Weight decreased [Unknown]
  - Movement disorder [Unknown]
  - Abasia [Unknown]
  - Compulsions [Unknown]
  - Eating disorder [Unknown]
  - Hyperhidrosis [Unknown]
